FAERS Safety Report 16790290 (Version 1)
Quarter: 2019Q3

REPORT INFORMATION
  Report Type: Spontaneous
  Country: FR (occurrence: FR)
  Receive Date: 20190910
  Receipt Date: 20190910
  Transmission Date: 20191005
  Serious: Yes (Hospitalization, Congenital Anomaly, Other)
  Sender: FDA-Public Use
  Company Number: PHHY2019FR202819

PATIENT
  Age: 33 Week
  Sex: Female
  Weight: 3.6 kg

DRUGS (4)
  1. DEPAKINE CHRONO [Suspect]
     Active Substance: VALPROATE SODIUM
     Indication: FOETAL EXPOSURE DURING PREGNANCY
     Dosage: MATERNAL DOSE: 500 MG, QD
     Route: 064
     Dates: start: 20050310, end: 20051121
  2. CLONAZEPAM. [Suspect]
     Active Substance: CLONAZEPAM
     Indication: FOETAL EXPOSURE DURING PREGNANCY
     Dosage: UNK
     Route: 064
     Dates: start: 20050310, end: 20051121
  3. LAMOTRIGINE. [Suspect]
     Active Substance: LAMOTRIGINE
     Indication: FOETAL EXPOSURE DURING PREGNANCY
     Dosage: MATERNAL DOSE: 275 MG, QD
     Route: 064
     Dates: start: 20050310, end: 20051121
  4. SPECIAFOLDINE [Concomitant]
     Active Substance: FOLIC ACID
     Indication: FOETAL EXPOSURE DURING PREGNANCY
     Dosage: MATERNAL DOSE: 15 MG, QD
     Route: 064
     Dates: start: 20050510, end: 20051121

REACTIONS (25)
  - Congenital gastric anomaly [Unknown]
  - Developmental delay [Unknown]
  - Nasopharyngitis [Unknown]
  - Rhinitis [Unknown]
  - Accidental exposure to product by child [Unknown]
  - Speech disorder developmental [Unknown]
  - Cognitive disorder [Unknown]
  - Toxicity to various agents [Unknown]
  - Congenital musculoskeletal anomaly [Unknown]
  - Behaviour disorder [Unknown]
  - Hirsutism [Recovering/Resolving]
  - Lower respiratory tract congestion [Unknown]
  - Precocious puberty [Recovering/Resolving]
  - Psychomotor retardation [Unknown]
  - Urogenital disorder [Unknown]
  - Impaired reasoning [Unknown]
  - Foetal exposure during pregnancy [Unknown]
  - Congenital oesophageal anomaly [Unknown]
  - Drug withdrawal syndrome [Unknown]
  - Weaning failure [Recovered/Resolved]
  - Constipation [Unknown]
  - Conjunctivitis [Unknown]
  - Psychomotor skills impaired [Unknown]
  - Otitis media [Unknown]
  - Learning disorder [Unknown]

NARRATIVE: CASE EVENT DATE: 20051121
